FAERS Safety Report 6228408-2 (Version None)
Quarter: 2009Q2

REPORT INFORMATION
  Report Type: 
  Country: None (occurrence: None)
  Receive Date: 20090610
  Receipt Date: 20090610
  Transmission Date: 20091009
  Serious: Yes (Hospitalization)
  Sender: FDA-Public Use
  Company Number: None

PATIENT
  Sex: Male
  Weight: 94 kg

DRUGS (3)
  1. CYTARABINE [Suspect]
     Dosage: 32000 MG
     Dates: end: 20090413
  2. ETOPOSIDE [Suspect]
     Dosage: 3120 MG
     Dates: end: 20090413
  3. RITUXIMAB (MOAB C2B8 ANTI CD20 CHIMERIC) [Suspect]
     Dosage: 1538 MG
     Dates: end: 20090420

REACTIONS (4)
  - DIARRHOEA [None]
  - FEBRILE NEUTROPENIA [None]
  - NAUSEA [None]
  - ORAL DISCOMFORT [None]
